FAERS Safety Report 8769460 (Version 1)
Quarter: 2012Q4

REPORT INFORMATION
  Report Type: 
  Country: US (occurrence: US)
  Receive Date: 20120905
  Receipt Date: 20120905
  Transmission Date: 20130627
  Serious: Yes (Disabling, Other)
  Sender: FDA-Public Use
  Company Number: US-PFIZER INC-2012214994

PATIENT
  Age: 30 Year
  Sex: Female
  Weight: 73 kg

DRUGS (20)
  1. PREMARIN [Suspect]
     Indication: HORMONE REPLACEMENT THERAPY
     Dosage: 0.625 mg, UNK
  2. PREMARIN [Suspect]
     Dosage: 0.9 mg, UNK
  3. AZITHROMYCIN [Suspect]
     Dosage: UNK
  4. SULFUR [Suspect]
     Dosage: UNK
  5. TEQUIN [Suspect]
     Dosage: UNK
  6. SPIRIVA [Concomitant]
     Indication: CHRONIC OBSTRUCTIVE PULMONARY DISEASE
     Dosage: 18 ug, 1x/day
  7. SPIRIVA [Concomitant]
     Indication: ASTHMA
  8. ADVAIR DISKUS [Concomitant]
     Indication: CHRONIC OBSTRUCTIVE PULMONARY DISEASE
     Dosage: 250/50 ug, one puff 2x/day
  9. ADVAIR DISKUS [Concomitant]
     Indication: ASTHMA
     Dosage: 250/50 ug, 2 puff daily at night
  10. ALBUTEROL [Concomitant]
     Indication: CHRONIC OBSTRUCTIVE PULMONARY DISEASE
     Dosage: UNK, as needed
  11. ALBUTEROL [Concomitant]
     Indication: ASTHMA
  12. ALBUTEROL [Concomitant]
     Indication: CHRONIC OBSTRUCTIVE PULMONARY DISEASE
     Dosage: UNK, as needed up to 4x/day
  13. ALBUTEROL [Concomitant]
     Indication: ASTHMA
  14. SINGULAIR [Concomitant]
     Indication: CHRONIC OBSTRUCTIVE PULMONARY DISEASE
     Dosage: 10 mg, 1x/day
  15. SINGULAIR [Concomitant]
     Indication: ASTHMA
  16. CETIRIZINE [Concomitant]
     Indication: HYPERSENSITIVITY
     Dosage: 10 mg, 1x/day
  17. PROTONIX [Concomitant]
     Dosage: 40 mg, 2x/day
  18. PROMETHAZINE [Concomitant]
     Dosage: 25 mg, 1x/day
  19. HYDROCODONE [Concomitant]
     Dosage: 10.325mg, 4x/day
  20. PAXIL [Concomitant]
     Dosage: 20 mg, 2x/day

REACTIONS (16)
  - Spinal fracture [Unknown]
  - Road traffic accident [Unknown]
  - Arthropathy [Unknown]
  - Arthropathy [Unknown]
  - Movement disorder [Unknown]
  - Fall [Unknown]
  - Upper limb fracture [Unknown]
  - Exostosis [Unknown]
  - Road traffic accident [Unknown]
  - Road traffic accident [Unknown]
  - Drug hypersensitivity [Unknown]
  - Drug ineffective [Unknown]
  - Blood cholesterol abnormal [Unknown]
  - Vitamin D decreased [Unknown]
  - Hypersensitivity [Unknown]
  - Malaise [Unknown]
